FAERS Safety Report 6913154-X (Version None)
Quarter: 2010Q3

REPORT INFORMATION
  Report Type: 
  Country: None (occurrence: None)
  Receive Date: 20100806
  Receipt Date: 20090911
  Transmission Date: 20110219
  Serious: No
  Sender: FDA-Public Use
  Company Number: US-PFIZER INC-2008021972

PATIENT
  Sex: Male
  Weight: 76.2 kg

DRUGS (8)
  1. DETROL LA [Suspect]
     Indication: HYPERTONIC BLADDER
     Dosage: 4 MG, 1X/DAY
     Route: 048
     Dates: start: 20070801, end: 20090101
  2. ISOSORBIDE [Concomitant]
     Dosage: UNK MG, 2X/DAY
  3. PRILOSEC [Concomitant]
     Indication: PROPHYLAXIS AGAINST GASTROINTESTINAL ULCER
  4. B50 [Concomitant]
  5. VITAMIN E [Concomitant]
  6. VITAMIN D [Concomitant]
  7. SIMVASTATIN [Concomitant]
     Dosage: 10 MG, UNK
     Route: 048
  8. METOPROLOL [Concomitant]
     Dosage: 50 MG, 2X/DAY

REACTIONS (2)
  - DRY MOUTH [None]
  - POLLAKIURIA [None]
